FAERS Safety Report 19404923 (Version 1)
Quarter: 2021Q2

REPORT INFORMATION
  Report Type: Spontaneous
  Country: US (occurrence: US)
  Receive Date: 20210611
  Receipt Date: 20210611
  Transmission Date: 20210717
  Serious: No
  Sender: FDA-Public Use
  Company Number: US-STRIDES ARCOLAB LIMITED-2021SP004164

PATIENT
  Age: 76 Year
  Sex: Male

DRUGS (3)
  1. PREDNISOLONE. [Suspect]
     Active Substance: PREDNISOLONE
     Indication: IMMUNE-MEDIATED ENTEROCOLITIS
     Dosage: UNK
     Route: 065
  2. PREDNISOLONE. [Suspect]
     Active Substance: PREDNISOLONE
     Dosage: 60 MILLIGRAM, DAILY
     Route: 065
  3. PREDNISOLONE. [Suspect]
     Active Substance: PREDNISOLONE
     Indication: ACUTE KIDNEY INJURY
     Dosage: UNK, TAPERED OVER 4 WEEKS
     Route: 065

REACTIONS (2)
  - Hyperglycaemia [Unknown]
  - Insomnia [Unknown]
